FAERS Safety Report 7983604-9 (Version None)
Quarter: 2011Q4

REPORT INFORMATION
  Report Type: 
  Country: None (occurrence: None)
  Receive Date: 20111215
  Receipt Date: 20111212
  Transmission Date: 20120403
  Serious: Yes (Death, Hospitalization)
  Sender: FDA-Public Use
  Company Number: PHHO2011DE06158

PATIENT
  Sex: Female
  Weight: 79 kg

DRUGS (11)
  1. METHYLPREDNISOLONE [Concomitant]
  2. LEVOTHYROXINE SODIUM [Concomitant]
  3. LOSARTAN POTASSIUM [Concomitant]
  4. PK-MERZ [Concomitant]
  5. NEURONTIN [Concomitant]
  6. SIMVASTATIN [Concomitant]
  7. LAXOBERAL [Concomitant]
  8. GILENYA [Suspect]
     Indication: MULTIPLE SCLEROSIS
     Dosage: 0.5 MG, QD
     Route: 048
     Dates: start: 20110204, end: 20110402
  9. SIMVAR [Concomitant]
  10. MIRTAZAPINE [Concomitant]
  11. LYRICA [Concomitant]

REACTIONS (1)
  - MYOCARDIAL INFARCTION [None]
